FAERS Safety Report 12552883 (Version 1)
Quarter: 2016Q3

REPORT INFORMATION
  Report Type: Report from Study
  Country: DE (occurrence: DE)
  Receive Date: 20160713
  Receipt Date: 20160713
  Transmission Date: 20161109
  Serious: Yes (Hospitalization, Other)
  Sender: FDA-Public Use
  Company Number: DE-ABBVIE-16K-062-1665775-00

PATIENT
  Age: 56 Year

DRUGS (6)
  1. AZILECT [Concomitant]
     Active Substance: RASAGILINE MESYLATE
     Indication: PRODUCT USED FOR UNKNOWN INDICATION
  2. AMANTADIN [Concomitant]
     Active Substance: AMANTADINE
     Indication: PRODUCT USED FOR UNKNOWN INDICATION
  3. ORFIRIL [Concomitant]
     Active Substance: VALPROIC ACID
     Indication: PRODUCT USED FOR UNKNOWN INDICATION
  4. DUODOPA [Suspect]
     Active Substance: CARBIDOPA\LEVODOPA
     Indication: PARKINSON^S DISEASE
     Dosage: MD8.2ML, CRD NOR REPORTED, ED 1.8ML
     Route: 050
     Dates: start: 20121101, end: 2016
  5. DUODOPA [Suspect]
     Active Substance: CARBIDOPA\LEVODOPA
     Dosage: MD 8.2ML, CRD 4.5ML/H, ED 1.8ML
     Route: 050
     Dates: start: 2016
  6. LEVOCA [Concomitant]
     Indication: PRODUCT USED FOR UNKNOWN INDICATION

REACTIONS (4)
  - Product contamination physical [Recovering/Resolving]
  - Bezoar [Recovering/Resolving]
  - Hyperkinesia [Unknown]
  - Device dislocation [Unknown]

NARRATIVE: CASE EVENT DATE: 20160629
